FAERS Safety Report 7166567-8 (Version None)
Quarter: 2010Q4

REPORT INFORMATION
  Report Type: 
  Country: None (occurrence: None)
  Receive Date: 20101216
  Receipt Date: 20101213
  Transmission Date: 20110411
  Serious: Yes (Life-Threatening, Hospitalization)
  Sender: FDA-Public Use
  Company Number: DE-SANOFI-AVENTIS-2010SA070204

PATIENT
  Age: 73 Year
  Sex: Female
  Weight: 93 kg

DRUGS (8)
  1. MULTAQ [Suspect]
     Route: 048
     Dates: start: 20100825, end: 20100915
  2. MARCUMAR [Interacting]
     Indication: ATRIAL FIBRILLATION
     Dosage: ACCORDING TO INR
     Route: 048
  3. OPIPRAMOL [Interacting]
     Indication: DEPRESSION
     Route: 048
  4. METOPROLOL SUCCINATE [Concomitant]
     Indication: ATRIAL FIBRILLATION
     Route: 048
     Dates: start: 20100825
  5. COAPROVEL [Concomitant]
     Indication: HYPERTENSION
     Route: 048
  6. RIFUN [Concomitant]
     Indication: GASTRITIS
     Route: 048
  7. LEVOTHYROXINE SODIUM [Concomitant]
     Indication: THYROID DISORDER
     Route: 048
  8. MAGNESIUM [Concomitant]
     Route: 048

REACTIONS (4)
  - ARRHYTHMIA [None]
  - DRUG INTERACTION [None]
  - ELECTROCARDIOGRAM QT PROLONGED [None]
  - TORSADE DE POINTES [None]
